FAERS Safety Report 20336622 (Version 2)
Quarter: 2022Q1

REPORT INFORMATION
  Report Type: Spontaneous
  Country: US (occurrence: US)
  Receive Date: 20220114
  Receipt Date: 20220212
  Transmission Date: 20220423
  Serious: No
  Sender: FDA-Public Use
  Company Number: US-GSKCCFUS-Case-01263706_AE-73936

PATIENT
  Sex: Female

DRUGS (1)
  1. FLOVENT HFA [Suspect]
     Active Substance: FLUTICASONE PROPIONATE
     Indication: Product used for unknown indication
     Dosage: 1 PUFF(S), BID 220 MCG
     Route: 055

REACTIONS (2)
  - Incorrect dose administered by device [Unknown]
  - Product complaint [Unknown]
